FAERS Safety Report 24613328 (Version 1)
Quarter: 2024Q4

REPORT INFORMATION
  Report Type: Report from Study
  Country: US (occurrence: US)
  Receive Date: 20241113
  Receipt Date: 20241113
  Transmission Date: 20250115
  Serious: Yes (Death)
  Sender: DAIICHI
  Company Number: US-DSJP-DS-2024-108133-US

PATIENT
  Age: 79 Year
  Sex: Male

DRUGS (1)
  1. ENHERTU [Suspect]
     Active Substance: FAM-TRASTUZUMAB DERUXTECAN-NXKI
     Indication: Product used for unknown indication
     Dosage: 403 MG
     Route: 042
     Dates: start: 20241029, end: 20241029

REACTIONS (1)
  - Death [Fatal]

NARRATIVE: CASE EVENT DATE: 20241110
